FAERS Safety Report 16525776 (Version 2)
Quarter: 2019Q3

REPORT INFORMATION
  Report Type: Report from Study
  Country: US (occurrence: US)
  Receive Date: 20190703
  Receipt Date: 20190731
  Transmission Date: 20191004
  Serious: Yes (Other)
  Sender: FDA-Public Use
  Company Number: PHEH2019US027825

PATIENT
  Sex: Male
  Weight: 72.12 kg

DRUGS (7)
  1. ENTRESTO [Suspect]
     Active Substance: SACUBITRIL\VALSARTAN
     Indication: CARDIAC FAILURE CONGESTIVE
     Dosage: 1 DF (SACUBITRIL 24 MG/ VALSARTAN 26 MG), BID
     Route: 048
     Dates: start: 20190311
  2. CARVEDILOL. [Concomitant]
     Active Substance: CARVEDILOL
     Indication: CARDIAC FAILURE CONGESTIVE
     Dosage: 25 MG, BID
     Route: 048
     Dates: start: 20180830
  3. ASA [Concomitant]
     Active Substance: ASPIRIN
     Indication: CARDIAC FAILURE CONGESTIVE
     Dosage: 81 MG, QD
     Route: 048
  4. XELODA [Concomitant]
     Active Substance: CAPECITABINE
     Indication: RECTAL CANCER STAGE III
     Route: 065
  5. FOLFOX [Concomitant]
     Active Substance: FLUOROURACIL\LEUCOVORIN CALCIUM\OXALIPLATIN
     Indication: RECTAL CANCER STAGE III
     Dosage: UNK
     Route: 065
     Dates: start: 2019
  6. ATORVASTATIN [Concomitant]
     Active Substance: ATORVASTATIN
     Indication: CARDIAC FAILURE CONGESTIVE
     Dosage: 40 MG, QD
     Route: 048
     Dates: start: 20180830
  7. SPIRONOLACTONE. [Concomitant]
     Active Substance: SPIRONOLACTONE
     Indication: CARDIAC FAILURE CONGESTIVE
     Dosage: 25 MG, QD
     Route: 048
     Dates: start: 20180902

REACTIONS (3)
  - Foreign body in eye [Recovered/Resolved]
  - Visual impairment [Recovered/Resolved]
  - Cataract [Recovered/Resolved]
